FAERS Safety Report 17212226 (Version 3)
Quarter: 2021Q1

REPORT INFORMATION
  Report Type: Spontaneous
  Country: JP (occurrence: JP)
  Receive Date: 20191230
  Receipt Date: 20210111
  Transmission Date: 20210419
  Serious: No
  Sender: FDA-Public Use
  Company Number: JP-BEH-2019110971

PATIENT
  Age: 10 Year
  Sex: Male
  Weight: 30 kg

DRUGS (12)
  1. IDELVION [Suspect]
     Active Substance: COAGULATION FACTOR IX RECOMBINANT HUMAN
     Dosage: 1000 IU,SINGLE
     Route: 042
     Dates: start: 20191215, end: 20191215
  2. IDELVION [Suspect]
     Active Substance: COAGULATION FACTOR IX RECOMBINANT HUMAN
     Indication: FACTOR IX DEFICIENCY
     Dosage: 1000 INTERNATIONAL UNIT, QW
     Route: 042
     Dates: start: 20190601
  3. IDELVION [Suspect]
     Active Substance: COAGULATION FACTOR IX RECOMBINANT HUMAN
     Indication: PROPHYLAXIS
     Dosage: 1000 INTERNATIONAL UNIT, QD
     Route: 042
     Dates: start: 20191206, end: 20191206
  4. IDELVION [Suspect]
     Active Substance: COAGULATION FACTOR IX RECOMBINANT HUMAN
     Dosage: 1000 IU, QW
     Route: 042
     Dates: start: 20190622, end: 20191201
  5. IDELVION [Suspect]
     Active Substance: COAGULATION FACTOR IX RECOMBINANT HUMAN
     Indication: JOINT INJURY
     Dosage: 1000 INTERNATIONAL UNITS, QD
     Route: 042
     Dates: start: 20191207, end: 20191207
  6. IDELVION [Suspect]
     Active Substance: COAGULATION FACTOR IX RECOMBINANT HUMAN
     Dosage: 1000 IU, QW
     Route: 042
     Dates: start: 20190622, end: 20191201
  7. IDELVION [Suspect]
     Active Substance: COAGULATION FACTOR IX RECOMBINANT HUMAN
     Dosage: 1000 INTERNATIONAL UNIT, SINGLE
     Route: 042
     Dates: start: 20191220, end: 20191220
  8. IDELVION [Suspect]
     Active Substance: COAGULATION FACTOR IX RECOMBINANT HUMAN
     Indication: PROPHYLAXIS
     Dosage: 1000 INTERNATIONAL UNIT, QD
     Route: 042
     Dates: start: 20191206, end: 20191206
  9. IDELVION [Suspect]
     Active Substance: COAGULATION FACTOR IX RECOMBINANT HUMAN
     Indication: FACTOR IX DEFICIENCY
     Dosage: 1000 INTERNATIONAL UNIT, QW
     Route: 042
     Dates: start: 20190601
  10. IDELVION [Suspect]
     Active Substance: COAGULATION FACTOR IX RECOMBINANT HUMAN
     Indication: JOINT INJURY
     Dosage: 1000 INTERNATIONAL UNITS, QD
     Route: 042
     Dates: start: 20191207, end: 20191207
  11. IDELVION [Suspect]
     Active Substance: COAGULATION FACTOR IX RECOMBINANT HUMAN
     Dosage: 1000 INTERNATIONAL UNIT, SINGLE
     Route: 042
     Dates: start: 20191220, end: 20191220
  12. IDELVION [Suspect]
     Active Substance: COAGULATION FACTOR IX RECOMBINANT HUMAN
     Dosage: 1000 IU,SINGLE
     Route: 042
     Dates: start: 20191215, end: 20191215

REACTIONS (4)
  - Off label use [Unknown]
  - Arthralgia [Recovered/Resolved]
  - No adverse event [Unknown]
  - Fall [Unknown]

NARRATIVE: CASE EVENT DATE: 20191206
